FAERS Safety Report 6249934-6 (Version None)
Quarter: 2009Q2

REPORT INFORMATION
  Report Type: 
  Country: None (occurrence: None)
  Receive Date: 20090625
  Receipt Date: 20090610
  Transmission Date: 20091009
  Serious: Yes (Other)
  Sender: FDA-Public Use
  Company Number: DSU-2009-01207

PATIENT
  Sex: Female

DRUGS (1)
  1. FLOXIN OTIC (SODIUM HYDROXIDE, SODIUM CHLORIDE, BENZALKONIUM CHLORIDE, [Suspect]
     Indication: DRUG USE FOR UNKNOWN INDICATION
     Dosage: AURICULAR (OTIC)
     Route: 001

REACTIONS (2)
  - CONVULSION [None]
  - LOSS OF CONSCIOUSNESS [None]
